FAERS Safety Report 15744461 (Version 1)
Quarter: 2018Q4

REPORT INFORMATION
  Report Type: Spontaneous
  Country: US (occurrence: US)
  Receive Date: 20181214
  Receipt Date: 20181214
  Transmission Date: 20190205
  Serious: Yes (Other)
  Sender: FDA-Public Use
  Company Number: None

PATIENT
  Age: 40 Year
  Sex: Female
  Weight: 54 kg

DRUGS (1)
  1. CBD OIL [Suspect]
     Active Substance: CANNABIDIOL\HERBALS
     Indication: ANXIETY
     Route: 048

REACTIONS (3)
  - Amnesia [None]
  - Fatigue [None]
  - Somnolence [None]

NARRATIVE: CASE EVENT DATE: 20181207
